FAERS Safety Report 6287241-6 (Version None)
Quarter: 2009Q3

REPORT INFORMATION
  Report Type: 
  Country: None (occurrence: None)
  Receive Date: 20090728
  Receipt Date: 20090715
  Transmission Date: 20100115
  Serious: Yes (Other)
  Sender: FDA-Public Use
  Company Number: PHHY2009FR29511

PATIENT
  Age: 55 Year
  Sex: Female

DRUGS (1)
  1. ACLASTA [Suspect]
     Indication: OSTEOPOROSIS
     Dosage: UNK
     Route: 042
     Dates: start: 20090601

REACTIONS (5)
  - CATARACT OPERATION [None]
  - MACULAR DEGENERATION [None]
  - OCULAR HYPERAEMIA [None]
  - PYREXIA [None]
  - UVEITIS [None]
